FAERS Safety Report 9785207 (Version 2)
Quarter: 2013Q4

REPORT INFORMATION
  Report Type: Report from Study
  Country: BR (occurrence: BR)
  Receive Date: 20131227
  Receipt Date: 20131227
  Transmission Date: 20140711
  Serious: Yes (Other)
  Sender: FDA-Public Use
  Company Number: BR-ROCHE-1250703

PATIENT
  Sex: Female
  Weight: 71 kg

DRUGS (7)
  1. ACTEMRA [Suspect]
     Indication: RHEUMATOID ARTHRITIS
     Dosage: ON 01/DEC/2013, SHE RECEIVED MOST RECENT INFUSION OF TOCILIZUMAB.
     Route: 042
     Dates: start: 20100101
  2. MICARDIS [Concomitant]
  3. NOVALGINA [Concomitant]
  4. ARAVA [Concomitant]
  5. METHOTREXATE [Concomitant]
  6. PRIMIDONE [Concomitant]
  7. SIMVASTATIN [Concomitant]

REACTIONS (10)
  - Intervertebral disc protrusion [Not Recovered/Not Resolved]
  - Back pain [Unknown]
  - Arthralgia [Unknown]
  - Hypertension [Unknown]
  - Spinal pain [Not Recovered/Not Resolved]
  - Pain [Not Recovered/Not Resolved]
  - Fatigue [Not Recovered/Not Resolved]
  - Headache [Not Recovered/Not Resolved]
  - Tremor [Not Recovered/Not Resolved]
  - Memory impairment [Not Recovered/Not Resolved]
